FAERS Safety Report 25832937 (Version 1)
Quarter: 2025Q3

REPORT INFORMATION
  Report Type: Spontaneous
  Country: US (occurrence: US)
  Receive Date: 20250922
  Receipt Date: 20250922
  Transmission Date: 20251020
  Serious: No
  Sender: BRAINTREE
  Company Number: US-BRAINTREE LABORATORIES, INC.-2025BTE00444

PATIENT
  Sex: Female
  Weight: 60.771 kg

DRUGS (5)
  1. SUPREP BOWEL PREP [Suspect]
     Active Substance: MAGNESIUM SULFATE\POTASSIUM SULFATE\SODIUM SULFATE
     Indication: Colonoscopy
     Route: 048
     Dates: start: 20250604, end: 202506
  2. LIALDA [Concomitant]
     Active Substance: MESALAMINE
     Dates: end: 202506
  3. COD LIVER OIL [Concomitant]
     Active Substance: COD LIVER OIL
  4. HERBALS\TURMERIC [Concomitant]
     Active Substance: HERBALS\TURMERIC
  5. UNSPECIFIED MEDICATIONS FOR ULCERATIVE COLITIS [Concomitant]

REACTIONS (8)
  - Rash papular [Not Recovered/Not Resolved]
  - Rash pruritic [Not Recovered/Not Resolved]
  - Gout [Recovered/Resolved]
  - White blood cell count increased [Recovered/Resolved]
  - Blood uric acid increased [Recovered/Resolved]
  - Skin exfoliation [Not Recovered/Not Resolved]
  - Fatigue [Recovered/Resolved]
  - Nausea [Unknown]

NARRATIVE: CASE EVENT DATE: 20250101
